FAERS Safety Report 10132873 (Version 2)
Quarter: 2014Q2

REPORT INFORMATION
  Report Type: Report from Study
  Country: DE (occurrence: DE)
  Receive Date: 20140428
  Receipt Date: 20140603
  Transmission Date: 20141212
  Serious: Yes (Hospitalization, Other)
  Sender: FDA-Public Use
  Company Number: DE-ABBVIE-14P-062-1227151-00

PATIENT
  Age: 40 Year
  Sex: Female
  Weight: 67 kg

DRUGS (17)
  1. HUMIRA [Suspect]
     Indication: CROHN^S DISEASE
     Route: 058
     Dates: start: 20121016, end: 20121016
  2. HUMIRA [Suspect]
     Route: 058
     Dates: start: 20121030, end: 20121030
  3. HUMIRA [Suspect]
     Route: 058
     Dates: start: 20121030, end: 20131129
  4. HUMIRA [Suspect]
     Route: 058
     Dates: start: 20131129, end: 20140312
  5. HUMIRA [Suspect]
     Route: 058
     Dates: start: 20140312
  6. COLESTYRAMINE [Suspect]
     Indication: PRODUCT USED FOR UNKNOWN INDICATION
  7. NOVALGIN [Concomitant]
     Indication: PRODUCT USED FOR UNKNOWN INDICATION
  8. PANTOPRAZOL [Concomitant]
     Indication: PRODUCT USED FOR UNKNOWN INDICATION
  9. VITAMIN B12 [Concomitant]
     Indication: PRODUCT USED FOR UNKNOWN INDICATION
  10. DEKRISTOL [Concomitant]
     Indication: PRODUCT USED FOR UNKNOWN INDICATION
  11. D3-VICOTRAT [Concomitant]
     Indication: PRODUCT USED FOR UNKNOWN INDICATION
  12. ESOMEPRAZOL [Concomitant]
     Indication: GASTRIC DISORDER
     Route: 048
  13. ESOMEPRAZOL [Concomitant]
     Indication: PROPHYLAXIS
  14. SULFASALAZIN [Concomitant]
     Indication: PRODUCT USED FOR UNKNOWN INDICATION
     Route: 048
  15. SULFASALAZIN [Concomitant]
     Route: 048
  16. AMITRIPTYLIN [Concomitant]
     Indication: PRODUCT USED FOR UNKNOWN INDICATION
     Route: 048
  17. AMITRIPTYLIN [Concomitant]
     Route: 048

REACTIONS (7)
  - Ileal stenosis [Unknown]
  - Scar [Unknown]
  - Intestinal resection [Not Recovered/Not Resolved]
  - Intestinal stenosis [Unknown]
  - Diarrhoea [Not Recovered/Not Resolved]
  - Drug intolerance [Not Recovered/Not Resolved]
  - Faecal calprotectin increased [Unknown]
